FAERS Safety Report 4569415-5 (Version None)
Quarter: 2005Q1

REPORT INFORMATION
  Report Type: 
  Country: None (occurrence: None)
  Receive Date: 20050203
  Receipt Date: 20050119
  Transmission Date: 20050727
  Serious: Yes (Other)
  Sender: FDA-Public Use
  Company Number: JP-JNJFOC-20041204471

PATIENT
  Sex: Female

DRUGS (4)
  1. ITRIZOLE [Suspect]
  2. ITRIZOLE [Suspect]
     Indication: ONYCHOMYCOSIS
  3. ALLOPURINOL [Concomitant]
     Route: 049
  4. THEOPHYLLINE [Concomitant]
     Route: 049

REACTIONS (1)
  - CHEST PAIN [None]
